FAERS Safety Report 7023306-9 (Version None)
Quarter: 2010Q3

REPORT INFORMATION
  Report Type: 
  Country: None (occurrence: None)
  Receive Date: 20100930
  Receipt Date: 20100922
  Transmission Date: 20110219
  Serious: Yes (Other)
  Sender: FDA-Public Use
  Company Number: US-AMGEN-QUU435157

PATIENT
  Sex: Female

DRUGS (2)
  1. NPLATE [Suspect]
     Indication: IDIOPATHIC THROMBOCYTOPENIC PURPURA
     Dates: start: 20090810
  2. CORTICOSTEROIDS [Concomitant]
     Dates: start: 20090424

REACTIONS (3)
  - EMBOLISM ARTERIAL [None]
  - MYELOFIBROSIS [None]
  - THERAPEUTIC RESPONSE DECREASED [None]
